FAERS Safety Report 7328705-3 (Version None)
Quarter: 2011Q1

REPORT INFORMATION
  Report Type: 
  Country: None (occurrence: None)
  Receive Date: 20110303
  Receipt Date: 20110225
  Transmission Date: 20110831
  Serious: Yes (Death, Other)
  Sender: FDA-Public Use
  Company Number: GB-ROCHE-752180

PATIENT
  Age: 56 Year
  Sex: Male

DRUGS (2)
  1. COPEGUS [Suspect]
     Indication: HEPATITIS C
     Route: 048
  2. PEGASYS [Suspect]
     Indication: HEPATITIS C
     Route: 058

REACTIONS (6)
  - HAEMOPTYSIS [None]
  - BLOOD BILIRUBIN INCREASED [None]
  - LIVER FUNCTION TEST ABNORMAL [None]
  - HEMIPARESIS [None]
  - CEREBRAL HAEMORRHAGE [None]
  - BLOOD ALKALINE PHOSPHATASE INCREASED [None]
